FAERS Safety Report 11925621 (Version 1)
Quarter: 2016Q1

REPORT INFORMATION
  Report Type: Report from Study
  Country: AU (occurrence: AU)
  Receive Date: 20160118
  Receipt Date: 20160118
  Transmission Date: 20160526
  Serious: Yes (Other)
  Sender: FDA-Public Use
  Company Number: AU-ABBVIE-16K-008-1538135-00

PATIENT
  Age: 72 Year
  Sex: Male

DRUGS (1)
  1. HUMIRA [Suspect]
     Active Substance: ADALIMUMAB
     Indication: RHEUMATOID ARTHRITIS
     Route: 058
     Dates: start: 20150728

REACTIONS (8)
  - Lower limb fracture [Recovering/Resolving]
  - Back pain [Recovering/Resolving]
  - Musculoskeletal pain [Recovering/Resolving]
  - Anxiety [Recovering/Resolving]
  - Neck pain [Recovering/Resolving]
  - Fall [Recovering/Resolving]
  - Patella fracture [Recovering/Resolving]
  - Post-traumatic stress disorder [Recovering/Resolving]

NARRATIVE: CASE EVENT DATE: 2015
